FAERS Safety Report 4530737-5 (Version None)
Quarter: 2004Q4

REPORT INFORMATION
  Report Type: 
  Country: None (occurrence: None)
  Receive Date: 20041217
  Receipt Date: 20041208
  Transmission Date: 20050328
  Serious: Yes (Other)
  Sender: FDA-Public Use
  Company Number: 00A25225

PATIENT
  Age: 54 Year
  Sex: Male

DRUGS (7)
  1. TAGAMET [Suspect]
     Indication: GASTRITIS
     Dates: start: 20011208
  2. ONON [Concomitant]
  3. FLUTICASONE PROPIONATE [Concomitant]
  4. ALLEGRA [Concomitant]
  5. ALBUMIN TANNATE [Concomitant]
  6. ALUMINIUM SILICATE [Concomitant]
  7. ANTIBIOTIC RESISTANT LACTIC ACID BACTERIAE [Concomitant]

REACTIONS (2)
  - HYPERKALAEMIA [None]
  - LEUKOCYTOSIS [None]
